FAERS Safety Report 19923483 (Version 4)
Quarter: 2022Q1

REPORT INFORMATION
  Report Type: Report from Study
  Country: US (occurrence: US)
  Receive Date: 20211006
  Receipt Date: 20220329
  Transmission Date: 20220424
  Serious: No
  Sender: FDA-Public Use
  Company Number: US-NOVARTISTESTPH-NVSC2021US227560

PATIENT
  Sex: Male

DRUGS (1)
  1. ENTRESTO [Suspect]
     Active Substance: SACUBITRIL\VALSARTAN
     Indication: Product used for unknown indication
     Dosage: 0.5 DOSAGE FORM, BID (HALF TABLET)
     Route: 048
     Dates: start: 20211001

REACTIONS (6)
  - Myalgia [Recovered/Resolved]
  - Dysstasia [Unknown]
  - Product lot number issue [Unknown]
  - Product expiration date issue [Unknown]
  - Fatigue [Recovered/Resolved]
  - Wrong technique in product usage process [Unknown]
